FAERS Safety Report 19482456 (Version 1)
Quarter: 2021Q3

REPORT INFORMATION
  Report Type: Spontaneous
  Country: US (occurrence: US)
  Receive Date: 20210701
  Receipt Date: 20210701
  Transmission Date: 20211014
  Serious: No
  Sender: FDA-Public Use
  Company Number: US-VIIV HEALTHCARE LIMITED-US2021AMR137591

PATIENT
  Sex: Male
  Weight: 40 kg

DRUGS (2)
  1. DORAVIRINE [Concomitant]
     Active Substance: DORAVIRINE
     Indication: PRODUCT USED FOR UNKNOWN INDICATION
     Dosage: UNK
  2. DOVATO [Suspect]
     Active Substance: DOLUTEGRAVIR SODIUM\LAMIVUDINE
     Indication: PRODUCT USED FOR UNKNOWN INDICATION
     Dosage: UNK

REACTIONS (3)
  - Viral load increased [Unknown]
  - CD4 lymphocytes decreased [Unknown]
  - Ill-defined disorder [Unknown]
